FAERS Safety Report 7893205-9 (Version None)
Quarter: 2011Q4

REPORT INFORMATION
  Report Type: 
  Country: None (occurrence: None)
  Receive Date: 20111104
  Receipt Date: 20111028
  Transmission Date: 20120403
  Serious: Yes (Death, Hospitalization, Other)
  Sender: FDA-Public Use
  Company Number: PHHY2011JP19840

PATIENT
  Sex: Male
  Weight: 65 kg

DRUGS (41)
  1. CIPROFLOXACIN HCL [Concomitant]
     Indication: PROPHYLAXIS
     Dosage: 600 MG, UNK
     Route: 048
     Dates: start: 20100803, end: 20110721
  2. ROHYPNOL [Concomitant]
     Indication: INSOMNIA
     Dosage: 2 MG, UNK
     Route: 048
     Dates: start: 20100803, end: 20110720
  3. LASIX [Concomitant]
     Indication: MYELODYSPLASTIC SYNDROME
     Dosage: 10 MG, UNK
     Dates: start: 20110608, end: 20110720
  4. RED CELLS CONCENTRATED [Concomitant]
     Dosage: 2 U, UNK
     Dates: start: 20110617
  5. NEORAL [Suspect]
     Dosage: 20 MG
     Route: 048
     Dates: start: 20101015, end: 20101021
  6. AMBISOME [Suspect]
     Dosage: 140 MG, DAILY
     Dates: start: 20110705, end: 20110720
  7. BAKTAR [Concomitant]
     Indication: PROPHYLAXIS
     Dosage: 80 MG, UNK
     Route: 048
     Dates: start: 20100803, end: 20110720
  8. CEFEPIME HYDROCHLORIDE [Concomitant]
     Dosage: 1 G, UNK
     Dates: start: 20101005, end: 20101013
  9. RED CELLS CONCENTRATED [Concomitant]
     Dosage: 2 U, UNK
     Dates: start: 20110412
  10. RED CELLS CONCENTRATED [Concomitant]
     Dosage: 2 U, UNK
     Dates: start: 20110620
  11. LASTET S [Concomitant]
     Indication: MYELODYSPLASTIC SYNDROME
     Dosage: 50-100-50 MG
     Route: 048
     Dates: start: 20110609, end: 20110720
  12. SUCRALFATE [Concomitant]
     Indication: PROPHYLAXIS
     Dosage: 3 G, UNK
     Dates: start: 20110204, end: 20110425
  13. MILMAG [Concomitant]
     Indication: PROPHYLAXIS
     Dosage: 1050 MG, UNK
     Dates: start: 20110307, end: 20110425
  14. RED CELLS CONCENTRATED [Concomitant]
     Dosage: 2 U, UNK
     Dates: start: 20110609
  15. EXJADE [Suspect]
     Dosage: 625 MG
     Route: 048
     Dates: start: 20100810, end: 20100830
  16. EXJADE [Suspect]
     Dosage: 500 MG
     Route: 048
     Dates: start: 20100907, end: 20101015
  17. NEORAL [Suspect]
     Dosage: 50 MG
     Route: 048
     Dates: start: 20101009, end: 20101014
  18. DIFLUCAN [Concomitant]
     Dosage: 100 MG, UNK
     Route: 048
     Dates: start: 20100803, end: 20101015
  19. RED CELLS CONCENTRATED [Concomitant]
     Dosage: 2 U, UNK
     Dates: start: 20110607
  20. EXJADE [Suspect]
     Dosage: 500 MG
     Route: 048
     Dates: start: 20100831, end: 20100906
  21. NEORAL [Suspect]
     Indication: MYELODYSPLASTIC SYNDROME
     Dosage: 200 MG
     Route: 048
     Dates: start: 20100803, end: 20100927
  22. ZOLPIDEM [Concomitant]
     Indication: INSOMNIA
     Dosage: 10 MG, UNK
     Route: 048
     Dates: start: 20100803, end: 20110720
  23. LOXONIN [Concomitant]
     Dosage: 180 MG, UNK
     Route: 048
     Dates: start: 20100812, end: 20110720
  24. PRIMOBOLAN-DEPOT INJ [Concomitant]
     Indication: MYELODYSPLASTIC SYNDROME
     Dosage: 10 MG, UNK
     Route: 048
     Dates: start: 20100914, end: 20110720
  25. ALLOPURINOL [Concomitant]
     Dosage: 100 MG, UNK
     Dates: start: 20110607, end: 20110720
  26. MUCOSOLVAN [Concomitant]
     Indication: PROPHYLAXIS
     Dosage: 45 MG, UNK
     Route: 048
     Dates: start: 20110612, end: 20110720
  27. RED CELLS CONCENTRATED [Concomitant]
     Dosage: 2 U/ 0.5 WEEKS
     Dates: start: 20110701, end: 20110715
  28. EXJADE [Suspect]
     Indication: IRON OVERLOAD
     Dosage: 1500 MG
     Route: 048
     Dates: start: 20100803, end: 20100809
  29. LANSOPRAZOLE [Concomitant]
     Dosage: 15 MG, UNK
     Route: 048
     Dates: start: 20100803, end: 20101015
  30. RED CELLS CONCENTRATED [Concomitant]
     Dosage: 2 U, UNK
     Dates: start: 20110426
  31. RED CELLS CONCENTRATED [Concomitant]
     Dosage: 2 U, UNK
     Dates: start: 20110524
  32. AMBISOME [Suspect]
     Indication: PNEUMONIA
     Dosage: 150 MG, DAILY
     Dates: start: 20110301, end: 20110318
  33. AMBISOME [Suspect]
     Dosage: 140 MG, DAILY
     Dates: start: 20110610, end: 20110627
  34. ALLOPURINOL [Concomitant]
     Indication: PROPHYLAXIS
     Dosage: 300 MG, UNK
     Dates: start: 20110607, end: 20110720
  35. RED CELLS CONCENTRATED [Concomitant]
     Dosage: 2 U, EVERY WEEK
     Dates: start: 20110204, end: 20110222
  36. RED CELLS CONCENTRATED [Concomitant]
     Dosage: 2 U, UNK
     Dates: start: 20110318
  37. MAGNESIUM OXIDE [Concomitant]
     Dosage: UNK
     Route: 048
     Dates: start: 20100921, end: 20100927
  38. ZITHROMAX [Concomitant]
     Dosage: 500 MG, UNK
     Dates: start: 20100810, end: 20100812
  39. HYDREA [Concomitant]
     Indication: MYELODYSPLASTIC SYNDROME
     Dosage: 100 MG, UNK
     Dates: start: 20110624, end: 20110629
  40. RED CELLS CONCENTRATED [Concomitant]
     Dosage: 2 U, EVERY 1.5 WEEKS
     Dates: start: 20110304, end: 20110315
  41. RED CELLS CONCENTRATED [Concomitant]
     Dosage: 2 U, UNK
     Dates: start: 20110627

REACTIONS (8)
  - PNEUMONIA [None]
  - UPPER RESPIRATORY TRACT INFLAMMATION [None]
  - RENAL IMPAIRMENT [None]
  - NEOPLASM MALIGNANT [None]
  - NEOPLASM PROGRESSION [None]
  - PLATELET COUNT INCREASED [None]
  - PYREXIA [None]
  - WHITE BLOOD CELL COUNT INCREASED [None]
